FAERS Safety Report 8896237 (Version 1)
Quarter: 2012Q4

REPORT INFORMATION
  Report Type: Spontaneous
  Country: US (occurrence: None)
  Receive Date: 20121106
  Receipt Date: 20121106
  Transmission Date: 20130627
  Serious: Yes (Other)
  Sender: FDA-Public Use
  Company Number: None

PATIENT
  Age: 6 Year
  Sex: Female
  Weight: 22.68 kg

DRUGS (3)
  1. TRILEPTAL [Suspect]
     Indication: CONVULSION DISORDER
     Dosage: 2.5 ml AM oral ; 7.5 ml PM oral
     Route: 048
  2. TRILEPTAL [Suspect]
     Indication: CONVULSION DISORDER
  3. OXCARBAZEPINE [Concomitant]

REACTIONS (1)
  - No adverse event [None]
